FAERS Safety Report 20201014 (Version 4)
Quarter: 2022Q3

REPORT INFORMATION
  Report Type: Report from Study
  Country: CA (occurrence: CA)
  Receive Date: 20211217
  Receipt Date: 20220712
  Transmission Date: 20221026
  Serious: Yes (Hospitalization, Other)
  Sender: FDA-Public Use
  Company Number: CA-GLAXOSMITHKLINE-CA2021255943

PATIENT

DRUGS (6)
  1. MEPOLIZUMAB [Suspect]
     Active Substance: MEPOLIZUMAB
     Indication: Asthma
     Dosage: 100 MG, Z (EVERY 4 WEEKS)
     Route: 058
     Dates: start: 20210802
  2. MEPOLIZUMAB [Suspect]
     Active Substance: MEPOLIZUMAB
     Dosage: 100 MG, Z (EVERY 4 WEEKS)
     Route: 058
     Dates: start: 20210802
  3. MEPOLIZUMAB [Suspect]
     Active Substance: MEPOLIZUMAB
     Indication: Asthma
     Dosage: 100 MG, Z EVERY 4 WEEKS
     Route: 058
     Dates: start: 20210802
  4. ARNUITY ELLIPTA [Concomitant]
     Active Substance: FLUTICASONE FUROATE
     Indication: Product used for unknown indication
     Dosage: 1 PUFF(S), QD (100 MCG)
  5. VENTOLIN [Concomitant]
     Active Substance: ALBUTEROL SULFATE
     Indication: Product used for unknown indication
     Dosage: 2 PUFF(S), PRN (AS NEEDED)
  6. TRELEGY ELLIPTA [Concomitant]
     Active Substance: FLUTICASONE FUROATE\UMECLIDINIUM BROMIDE\VILANTEROL TRIFENATATE
     Indication: Product used for unknown indication
     Dosage: 1 PUFF(S), QD, 100MG

REACTIONS (20)
  - Cystitis [Unknown]
  - Urinary tract infection [Unknown]
  - Urinary retention [Recovered/Resolved]
  - Fungal oesophagitis [Unknown]
  - Oesophageal candidiasis [Unknown]
  - Aspergillus infection [Unknown]
  - Dysuria [Unknown]
  - Increased viscosity of bronchial secretion [Unknown]
  - Productive cough [Unknown]
  - Cough [Unknown]
  - Tongue fungal infection [Unknown]
  - Vocal cord erythema [Unknown]
  - Aphonia [Unknown]
  - Pharyngitis [Unknown]
  - Laryngitis [Unknown]
  - Fungal infection [Unknown]
  - Oral candidiasis [Unknown]
  - Blood pressure increased [Unknown]
  - Stress [Unknown]
  - Anxiety [Unknown]

NARRATIVE: CASE EVENT DATE: 20210101
